FAERS Safety Report 21696317 (Version 1)
Quarter: 2022Q4

REPORT INFORMATION
  Report Type: Spontaneous
  Country: US (occurrence: US)
  Receive Date: 20221207
  Receipt Date: 20221207
  Transmission Date: 20230113
  Serious: Yes (Other)
  Sender: FDA-Public Use
  Company Number: US-TAKEDA-2022TUS092338

PATIENT
  Age: 67 Year
  Sex: Male

DRUGS (6)
  1. HUMAN IMMUNOGLOBULIN G [Suspect]
     Active Substance: HUMAN IMMUNOGLOBULIN G
     Indication: Polyomavirus-associated nephropathy
     Dosage: UNK
     Route: 042
  2. TACROLIMUS [Concomitant]
     Active Substance: TACROLIMUS
     Dosage: UNK
     Route: 065
  3. MYCOPHENOLIC ACID [Concomitant]
     Active Substance: MYCOPHENOLIC ACID
     Dosage: UNK
     Route: 065
  4. PREDNISONE [Concomitant]
     Active Substance: PREDNISONE
     Dosage: 3 DOSAGE FORM, 1/WEEK
     Route: 065
  5. SIROLIMUS [Concomitant]
     Active Substance: SIROLIMUS
     Dosage: UNK
     Route: 065
  6. CIDOFOVIR [Concomitant]
     Active Substance: CIDOFOVIR
     Dosage: UNK UNK, Q2WEEKS
     Route: 065

REACTIONS (2)
  - Haemolytic anaemia [Unknown]
  - Off label use [Unknown]
